FAERS Safety Report 10738826 (Version 2)
Quarter: 2015Q1

REPORT INFORMATION
  Report Type: Spontaneous
  Country: JP (occurrence: JP)
  Receive Date: 20150126
  Receipt Date: 20150127
  Transmission Date: 20150721
  Serious: Yes (Death, Life-Threatening)
  Sender: FDA-Public Use
  Company Number: JP-MALLINCKRODT-T201500874

PATIENT
  Age: 66 Year
  Sex: Male
  Weight: 55 kg

DRUGS (20)
  1. RINDERON V [Concomitant]
     Active Substance: BETAMETHASONE VALERATE
     Dosage: 4 MG, UNK
     Route: 048
     Dates: start: 20140724, end: 20140728
  2. KYTRIL [Concomitant]
     Active Substance: GRANISETRON HYDROCHLORIDE
     Dosage: 1 MG
     Route: 048
     Dates: start: 20140801, end: 20140804
  3. CALONAL [Concomitant]
     Active Substance: ACETAMINOPHEN
     Dosage: 1600 MG
     Route: 048
     Dates: start: 20140717, end: 20140831
  4. TAKEPRON [Concomitant]
     Active Substance: LANSOPRAZOLE
     Dosage: 15 MG
     Route: 048
     Dates: start: 20140724, end: 20140801
  5. METHADONE [Suspect]
     Active Substance: METHADONE HYDROCHLORIDE
     Indication: CANCER PAIN
     Dosage: 15 MG, (30 MG DAILY  DOSE)
     Route: 048
     Dates: start: 20140723, end: 20140729
  6. OXINORM [Suspect]
     Active Substance: OXYCODONE HYDROCHLORIDE
     Indication: ANALGESIC THERAPY
     Dosage: 30 MG, P.R.N.
     Route: 048
     Dates: start: 20140722
  7. KETAMINE [Concomitant]
     Active Substance: KETAMINE
     Dosage: 240 MG
     Route: 048
     Dates: start: 20140728, end: 20140730
  8. HYPEN [Concomitant]
     Active Substance: ETODOLAC
     Dosage: 800 MG
     Route: 048
     Dates: start: 20140731, end: 20140831
  9. CYTOTEC [Concomitant]
     Active Substance: MISOPROSTOL
     Dosage: 300 MG
     Route: 048
     Dates: end: 20140801
  10. ROZEREM [Concomitant]
     Active Substance: RAMELTEON
     Dosage: 8 MG
     Route: 048
     Dates: start: 20140717, end: 20140829
  11. SOL-MELCORT [Concomitant]
     Active Substance: METHYLPREDNISOLONE SODIUM SUCCINATE
     Dosage: UNK
     Route: 051
     Dates: start: 20140728, end: 20140728
  12. MEILAX [Concomitant]
     Active Substance: ETHYL LOFLAZEPATE
     Dosage: 1 MG
     Route: 048
     Dates: start: 20140705, end: 20140829
  13. METHADONE [Suspect]
     Active Substance: METHADONE HYDROCHLORIDE
     Dosage: 15 MG, (45MG DAILY DOSE)
     Route: 048
     Dates: start: 20140806, end: 20140827
  14. BETAMETHASON                       /00008501/ [Concomitant]
     Dosage: UNK
     Route: 029
     Dates: start: 20140725, end: 20140725
  15. MAGMITT [Concomitant]
     Active Substance: MAGNESIUM OXIDE
     Dosage: 1500 MG
     Route: 048
     Dates: end: 20140829
  16. NEXIUM [Concomitant]
     Active Substance: ESOMEPRAZOLE MAGNESIUM
     Dosage: 10MG
     Route: 048
     Dates: start: 20140802, end: 20140809
  17. METHADONE [Suspect]
     Active Substance: METHADONE HYDROCHLORIDE
     Dosage: 20 MG, (60MG DAILY DOSE)
     Route: 048
     Dates: start: 20140730, end: 20140805
  18. LOXONIN [Concomitant]
     Active Substance: LOXOPROFEN SODIUM
     Dosage: 180 MG, UNK
     Route: 048
     Dates: end: 20140801
  19. AMLODIPIN [Concomitant]
     Active Substance: AMLODIPINE BESYLATE
     Dosage: 5 MG
     Route: 048
     Dates: end: 20140828
  20. SEROQUEL [Concomitant]
     Active Substance: QUETIAPINE FUMARATE
     Dosage: 25 MG
     Route: 048
     Dates: start: 20140707, end: 20140831

REACTIONS (2)
  - Delirium [Recovering/Resolving]
  - Malignant neoplasm progression [Fatal]

NARRATIVE: CASE EVENT DATE: 20140805
